FAERS Safety Report 5836547-0 (Version None)
Quarter: 2008Q3

REPORT INFORMATION
  Report Type: 
  Country: None (occurrence: None)
  Receive Date: 20080807
  Receipt Date: 20080730
  Transmission Date: 20090109
  Serious: Yes (Other)
  Sender: FDA-Public Use
  Company Number: JP-BAYER-200811714BYL

PATIENT
  Age: 39 Year
  Sex: Female

DRUGS (2)
  1. NIFEDIPINE [Suspect]
     Indication: HYPERTENSION
     Route: 048
  2. LABETALOL HYDROCHLORIDE [Concomitant]
     Indication: HYPERTENSION
     Route: 065

REACTIONS (3)
  - ACUTE PULMONARY OEDEMA [None]
  - CAESAREAN SECTION [None]
  - UMBILICAL CORD VASCULAR DISORDER [None]
